FAERS Safety Report 11273367 (Version 1)
Quarter: 2015Q3

REPORT INFORMATION
  Report Type: Spontaneous
  Country: MX (occurrence: MX)
  Receive Date: 20150715
  Receipt Date: 20150715
  Transmission Date: 20151125
  Serious: Yes (Other)
  Sender: FDA-Public Use
  Company Number: MX-PFIZER INC-2015230732

PATIENT
  Sex: Female

DRUGS (1)
  1. DALACIN C [Suspect]
     Active Substance: CLINDAMYCIN PHOSPHATE
     Indication: TONSILLITIS
     Dosage: UNK
     Dates: start: 20150707

REACTIONS (5)
  - Nausea [Unknown]
  - Vomiting [Unknown]
  - Laryngeal oedema [Unknown]
  - Pharyngeal oedema [Unknown]
  - Oesophageal oedema [Unknown]

NARRATIVE: CASE EVENT DATE: 20150707
